FAERS Safety Report 7148081-9 (Version None)
Quarter: 2010Q4

REPORT INFORMATION
  Report Type: 
  Country: None (occurrence: None)
  Receive Date: 20101209
  Receipt Date: 20100908
  Transmission Date: 20110411
  Serious: No
  Sender: FDA-Public Use
  Company Number: US-ABBOTT-10P-163-0672947-00

PATIENT
  Sex: Male

DRUGS (1)
  1. VICODIN ES [Suspect]
     Indication: PRODUCT USED FOR UNKNOWN INDICATION
     Dosage: 7.5 MG/750 MG

REACTIONS (6)
  - COUNTERFEIT DRUG ADMINISTERED [None]
  - NAUSEA [None]
  - OVERDOSE [None]
  - PRODUCT COUNTERFEIT [None]
  - SENSORY DISTURBANCE [None]
  - SOMNOLENCE [None]
